FAERS Safety Report 6106491-2 (Version None)
Quarter: 2009Q1

REPORT INFORMATION
  Report Type: 
  Country: None (occurrence: None)
  Receive Date: 20090306
  Receipt Date: 20090302
  Transmission Date: 20090719
  Serious: Yes (Life-Threatening, Hospitalization)
  Sender: FDA-Public Use
  Company Number: ZM-GILEAD-2009-0020290

PATIENT
  Age: 47 Year
  Sex: Female
  Weight: 59.5 kg

DRUGS (8)
  1. TRUVADA [Suspect]
     Indication: HIV INFECTION
     Route: 048
     Dates: start: 20081205, end: 20090105
  2. STOCRIN [Suspect]
     Indication: HIV INFECTION
     Route: 048
     Dates: start: 20081205, end: 20090105
  3. FLAGYL [Concomitant]
  4. RIFAMPICIN [Concomitant]
     Dates: end: 20081230
  5. ISONIAZID [Concomitant]
     Dates: end: 20081230
  6. ETHAMBUTOL HCL [Concomitant]
     Dates: end: 20081230
  7. PYRAZINAMIDE [Concomitant]
     Dates: end: 20081230
  8. COTRIMOXAZOLE [Concomitant]
     Dates: end: 20081230

REACTIONS (2)
  - ANAEMIA [None]
  - RENAL IMPAIRMENT [None]
